FAERS Safety Report 25094436 (Version 1)
Quarter: 2025Q1

REPORT INFORMATION
  Report Type: Spontaneous
  Country: CN (occurrence: CN)
  Receive Date: 20250319
  Receipt Date: 20250319
  Transmission Date: 20250409
  Serious: Yes (Other)
  Sender: CHEPLAPHARM
  Company Number: CN-CHEPLA-2025003473

PATIENT
  Age: 35 Year
  Sex: Male
  Weight: 70 kg

DRUGS (10)
  1. OLANZAPINE [Suspect]
     Active Substance: OLANZAPINE
     Indication: Mental disorder
     Dosage: NATIONAL APPROVAL NO: H20160497; QN?DAILY DOSE: 5 MILLIGRAM
     Route: 048
     Dates: start: 20250214, end: 20250304
  2. VALPROATE SODIUM [Suspect]
     Active Substance: VALPROATE SODIUM
     Indication: Mania
     Dosage: NATIONAL APPROVAL NUMBER HJ20171272; SUSTAINED-RELEASE TABLETS?, QD?DAILY DOSE: 0.5 GRAM
     Route: 048
     Dates: start: 20250223, end: 20250224
  3. METHYLPREDNISOLONE [Suspect]
     Active Substance: METHYLPREDNISOLONE
     Indication: Encephalitis viral
     Dosage: INTRAVENOUS DRIP; NATIONAL APPROVAL NUMBER H20153195??DAILY DOSE: 1 GRAM
     Route: 042
     Dates: start: 20250214, end: 20250304
  4. METHYLPREDNISOLONE [Suspect]
     Active Substance: METHYLPREDNISOLONE
     Indication: Encephalitis autoimmune
     Dosage: INTRAVENOUS DRIP; NATIONAL APPROVAL NUMBER H20153195??DAILY DOSE: 1 GRAM
     Route: 042
     Dates: start: 20250214, end: 20250304
  5. METHYLPREDNISOLONE [Suspect]
     Active Substance: METHYLPREDNISOLONE
     Indication: Encephalitis viral
     Dosage: METHYLPREDNISOLONE SODIUM SUCCINATE FORINJECTION 1G + 0.9% SODIUM CHLORIDE INJECTION 500ML QD; IN...
     Route: 042
     Dates: start: 20250217
  6. METHYLPREDNISOLONE [Suspect]
     Active Substance: METHYLPREDNISOLONE
     Indication: Encephalitis autoimmune
     Dosage: METHYLPREDNISOLONE SODIUM SUCCINATE FORINJECTION 1G + 0.9% SODIUM CHLORIDE INJECTION 500ML QD; IN...
     Route: 042
     Dates: start: 20250217
  7. ACYCLOVIR [Suspect]
     Active Substance: ACYCLOVIR
     Indication: Encephalitis viral
     Route: 042
     Dates: start: 20250214, end: 20250228
  8. ACYCLOVIR [Suspect]
     Active Substance: ACYCLOVIR
     Indication: Meningitis viral
     Route: 042
     Dates: start: 20250214, end: 20250228
  9. SODIUM CHLORIDE [Concomitant]
     Active Substance: SODIUM CHLORIDE
     Indication: Encephalitis viral
     Route: 042
     Dates: start: 20250214, end: 20250228
  10. SODIUM CHLORIDE [Concomitant]
     Active Substance: SODIUM CHLORIDE
     Indication: Encephalitis viral
     Dosage: NATIONAL APPROVAL NUMBER H20065567?, INTRAVENOUS DRIP; METHYLPREDNISOLONE SODIUM SUCCINATE FORINJ...
     Route: 042
     Dates: start: 20250217, end: 20250304

REACTIONS (1)
  - Drug-induced liver injury [Unknown]

NARRATIVE: CASE EVENT DATE: 20250224
